FAERS Safety Report 17929313 (Version 1)
Quarter: 2020Q2

REPORT INFORMATION
  Report Type: Spontaneous
  Country: FR (occurrence: FR)
  Receive Date: 20200623
  Receipt Date: 20200623
  Transmission Date: 20200714
  Serious: Yes (Hospitalization)
  Sender: FDA-Public Use
  Company Number: NVSC2020FR172533

PATIENT
  Age: 69 Year
  Sex: Female
  Weight: 110 kg

DRUGS (4)
  1. LOVENOX [Suspect]
     Active Substance: ENOXAPARIN SODIUM
     Indication: FEMORAL NECK FRACTURE
     Dosage: 6000 IU, QD
     Route: 058
     Dates: start: 20200322
  2. BACTRIM [Suspect]
     Active Substance: SULFAMETHOXAZOLE\TRIMETHOPRIM
     Indication: URINARY TRACT INFECTION
     Dosage: UNK
     Route: 048
     Dates: start: 20200317, end: 20200321
  3. PARACETAMOL [Suspect]
     Active Substance: ACETAMINOPHEN
     Indication: FEMORAL NECK FRACTURE
     Dosage: 3 G, QD
     Route: 048
     Dates: start: 20200321
  4. AMIODARONE [Suspect]
     Active Substance: AMIODARONE
     Indication: PRODUCT USED FOR UNKNOWN INDICATION
     Dosage: 200 MG, QD (5 JOURS SUR 7)
     Route: 048
     Dates: start: 202002

REACTIONS (1)
  - Acute generalised exanthematous pustulosis [Recovering/Resolving]

NARRATIVE: CASE EVENT DATE: 20200325
